FAERS Safety Report 8386908-3 (Version None)
Quarter: 2012Q2

REPORT INFORMATION
  Report Type: 
  Country: None (occurrence: None)
  Receive Date: 20120525
  Receipt Date: 20120515
  Transmission Date: 20120825
  Serious: No
  Sender: FDA-Public Use
  Company Number: US-ENDO PHARMACEUTICALS INC.-OPCR20120978

PATIENT
  Sex: Male

DRUGS (1)
  1. OPANA ER [Suspect]
     Indication: PRODUCT USED FOR UNKNOWN INDICATION
     Route: 048
     Dates: start: 20120501, end: 20120501

REACTIONS (4)
  - NAUSEA [None]
  - DYSPNOEA [None]
  - URTICARIA [None]
  - CHOKING [None]
